FAERS Safety Report 5288365-2 (Version None)
Quarter: 2007Q2

REPORT INFORMATION
  Report Type: 
  Country: None (occurrence: None)
  Receive Date: 20070405
  Receipt Date: 20070327
  Transmission Date: 20071010
  Serious: Yes (Hospitalization)
  Sender: FDA-Public Use
  Company Number: BE-ABBOTT-07P-013-0362036-00

PATIENT
  Sex: Female

DRUGS (2)
  1. HUMIRA [Suspect]
     Indication: RHEUMATOID ARTHRITIS
     Route: 058
     Dates: start: 20060508, end: 20061110
  2. LEFLUNOMIDE [Concomitant]
     Indication: RHEUMATOID ARTHRITIS

REACTIONS (9)
  - ANAPLASTIC LARGE CELL LYMPHOMA T- AND NULL-CELL TYPES RECURRENT [None]
  - BLOOD LACTATE DEHYDROGENASE INCREASED [None]
  - CARDIAC FAILURE [None]
  - CARDIOMYOPATHY [None]
  - CREPITATIONS [None]
  - EJECTION FRACTION DECREASED [None]
  - GALLOP RHYTHM PRESENT [None]
  - LIVER FUNCTION TEST ABNORMAL [None]
  - PYREXIA [None]
